FAERS Safety Report 19103594 (Version 2)
Quarter: 2021Q2

REPORT INFORMATION
  Report Type: Spontaneous
  Country: GR (occurrence: GR)
  Receive Date: 20210407
  Receipt Date: 20210414
  Transmission Date: 20210717
  Serious: Yes (Other)
  Sender: FDA-Public Use
  Company Number: GR-PFIZER INC-2021341278

PATIENT
  Age: 65 Year
  Sex: Female

DRUGS (12)
  1. ATORVASTATIN CALCIUM. [Suspect]
     Active Substance: ATORVASTATIN CALCIUM
     Dosage: 40 MG
  2. SACUBITRIL/VALSARTAN [Suspect]
     Active Substance: SACUBITRIL\VALSARTAN
     Dosage: 24/26 MILLIGRAM, BID
     Route: 065
  3. ASA [Concomitant]
     Active Substance: ASPIRIN
     Dosage: 100 MG
     Route: 065
  4. FUROSEMIDE. [Concomitant]
     Active Substance: FUROSEMIDE
     Dosage: 40 MG
     Route: 065
  5. CLOPIDOGREL [Concomitant]
     Active Substance: CLOPIDOGREL BISULFATE
     Dosage: 75 MG
     Route: 065
  6. RAMIPRIL. [Concomitant]
     Active Substance: RAMIPRIL
     Dosage: UNK
     Route: 065
  7. FUROSEMIDE. [Concomitant]
     Active Substance: FUROSEMIDE
     Dosage: 20 MG, 1X/DAY
     Route: 065
  8. EPLERENONE. [Concomitant]
     Active Substance: EPLERENONE
     Dosage: 25 MG, 1X/DAY
  9. SACUBITRIL/VALSARTAN [Suspect]
     Active Substance: SACUBITRIL\VALSARTAN
     Dosage: 49/51 MILLIGRAM, BID
     Route: 065
  10. BISOPROLOL [Concomitant]
     Active Substance: BISOPROLOL
     Dosage: 5 MG, 1X/DAY
     Route: 065
  11. METFORMIN [Concomitant]
     Active Substance: METFORMIN HYDROCHLORIDE
     Dosage: 1700 MG
     Route: 065
  12. PANTOPRAZOLE [Suspect]
     Active Substance: PANTOPRAZOLE
     Dosage: 40 MG

REACTIONS (4)
  - Cardiac failure chronic [Unknown]
  - Hypotension [Unknown]
  - Hyperkalaemia [Unknown]
  - Renal impairment [Unknown]
